FAERS Safety Report 18345438 (Version 2)
Quarter: 2020Q4

REPORT INFORMATION
  Report Type: Spontaneous
  Country: US (occurrence: US)
  Receive Date: 20201005
  Receipt Date: 20201016
  Transmission Date: 20210114
  Serious: Yes (Hospitalization, Other)
  Sender: FDA-Public Use
  Company Number: US-ASTRAZENECA-2020SF27273

PATIENT
  Age: 18256 Day
  Sex: Male

DRUGS (13)
  1. REPLESTA [Concomitant]
     Active Substance: CHOLECALCIFEROL
  2. HYDROCHLOROTHIAZIDE. [Concomitant]
     Active Substance: HYDROCHLOROTHIAZIDE
  3. FARXIGA [Suspect]
     Active Substance: DAPAGLIFLOZIN PROPANEDIOL
     Indication: WEIGHT DECREASED
     Route: 048
     Dates: start: 20151025, end: 201610
  4. FARXIGA [Suspect]
     Active Substance: DAPAGLIFLOZIN PROPANEDIOL
     Indication: TYPE 2 DIABETES MELLITUS
     Route: 048
     Dates: start: 20151025, end: 201610
  5. PROMETHAZINE-CODEINE [Concomitant]
     Active Substance: CODEINE PHOSPHATE\PROMETHAZINE
  6. FARXIGA [Suspect]
     Active Substance: DAPAGLIFLOZIN PROPANEDIOL
     Indication: BLOOD PRESSURE DECREASED
     Route: 048
     Dates: start: 20151025, end: 201610
  7. SIMVASTATIN. [Concomitant]
     Active Substance: SIMVASTATIN
  8. LISINOPRIL. [Concomitant]
     Active Substance: LISINOPRIL
  9. METFORMIN [Concomitant]
     Active Substance: METFORMIN HYDROCHLORIDE
  10. AMOX-CLAV [Concomitant]
     Active Substance: AMOXICILLIN\CLAVULANATE POTASSIUM
  11. VITAMIN A [Concomitant]
     Active Substance: VITAMIN A
  12. ZINCATE [Concomitant]
  13. METOPROLOL. [Concomitant]
     Active Substance: METOPROLOL

REACTIONS (9)
  - Fournier^s gangrene [Unknown]
  - Groin abscess [Unknown]
  - Cellulitis [Unknown]
  - Scar [Unknown]
  - Deformity [Unknown]
  - Necrotising soft tissue infection [Unknown]
  - Nerve injury [Unknown]
  - Pain [Unknown]
  - Anal incontinence [Unknown]

NARRATIVE: CASE EVENT DATE: 20151103
